FAERS Safety Report 10186140 (Version 1)
Quarter: 2014Q2

REPORT INFORMATION
  Report Type: Spontaneous
  Country: UY (occurrence: UY)
  Receive Date: 20140521
  Receipt Date: 20140521
  Transmission Date: 20141212
  Serious: Yes (Other)
  Sender: FDA-Public Use
  Company Number: UY-PFIZER INC-2014135961

PATIENT
  Sex: Male

DRUGS (2)
  1. SUTENT [Suspect]
     Dosage: UNK
     Dates: start: 201402
  2. SUTENT [Suspect]
     Dosage: UNK
     Dates: start: 201403

REACTIONS (2)
  - Myocardial infarction [Unknown]
  - Renal disorder [Unknown]
